FAERS Safety Report 6229915-9 (Version None)
Quarter: 2009Q2

REPORT INFORMATION
  Report Type: 
  Country: None (occurrence: None)
  Receive Date: 20090615
  Receipt Date: 20090601
  Transmission Date: 20091009
  Serious: Yes (Other)
  Sender: FDA-Public Use
  Company Number: NZ-ELI_LILLY_AND_COMPANY-NZ200906000001

PATIENT
  Age: 8 Year
  Sex: Male

DRUGS (4)
  1. STRATTERA [Suspect]
     Indication: ATTENTION DEFICIT/HYPERACTIVITY DISORDER
     Dosage: 10 MG, DAILY (1/D)
     Route: 048
  2. STRATTERA [Suspect]
     Dosage: 18 MG, DAILY (1/D)
     Route: 048
  3. VENTOLIN                                /SCH/ [Concomitant]
     Dosage: UNK, UNKNOWN
     Route: 065
  4. BECLAZONE [Concomitant]
     Dosage: UNK, UNKNOWN
     Route: 065

REACTIONS (12)
  - CHILLS [None]
  - CHROMATURIA [None]
  - CONSTIPATION [None]
  - HEPATIC ENZYME INCREASED [None]
  - INFLUENZA LIKE ILLNESS [None]
  - LETHARGY [None]
  - NECK MASS [None]
  - OCULAR HYPERAEMIA [None]
  - OCULAR ICTERUS [None]
  - PYREXIA [None]
  - VOMITING [None]
  - WEIGHT DECREASED [None]
